FAERS Safety Report 9820477 (Version 2)
Quarter: 2015Q1

REPORT INFORMATION
  Report Type: Spontaneous
  Country: FR (occurrence: None)
  Receive Date: 20140114
  Receipt Date: 20150213
  Transmission Date: 20150721
  Serious: Yes (Hospitalization)
  Sender: FDA-Public Use
  Company Number: 2014-0033-SPO

PATIENT
  Age: 47 Year
  Sex: Female

DRUGS (7)
  1. ANDROCUR [Suspect]
     Active Substance: CYPROTERONE ACETATE
     Indication: POLYCYSTIC OVARIES
     Route: 048
     Dates: start: 198701, end: 198708
  2. STEDIRIL [Suspect]
     Active Substance: ETHINYL ESTRADIOL\NORGESTREL
     Indication: PRODUCT USED FOR UNKNOWN INDICATION
     Route: 048
     Dates: start: 198404, end: 198410
  3. ETHINYLESTRADIOL(ETHINYLESTRADIOL) [Concomitant]
  4. MINIDRIL [Suspect]
     Active Substance: ETHINYL ESTRADIOL\LEVONORGESTREL
     Indication: PRODUCT USED FOR UNKNOWN INDICATION
     Route: 048
     Dates: start: 198609, end: 198610
  5. CLOMIFENE(CLOMIFENE) [Concomitant]
  6. PERIDOPRIL(PERINDOPRIL) [Concomitant]
  7. OESTROGEL [Suspect]
     Active Substance: ESTRADIOL
     Indication: PRODUCT USED FOR UNKNOWN INDICATION
     Dosage: 1 IN 3 DAY, 1 IN 3 D CUTANEOUS
     Route: 048
     Dates: start: 199209, end: 2013

REACTIONS (5)
  - Meningioma [None]
  - Optic nerve disorder [None]
  - Visual acuity reduced [None]
  - Treatment noncompliance [None]
  - Quadranopia [None]

NARRATIVE: CASE EVENT DATE: 20130718
